FAERS Safety Report 6653310-1 (Version None)
Quarter: 2010Q1

REPORT INFORMATION
  Report Type: 
  Country: None (occurrence: None)
  Receive Date: 20100326
  Receipt Date: 20100317
  Transmission Date: 20100710
  Serious: Yes (Death)
  Sender: FDA-Public Use
  Company Number: JP-ROCHE-461381

PATIENT
  Age: 30 Year
  Sex: Male

DRUGS (2)
  1. ANEXATE [Suspect]
     Indication: DRUG USE FOR UNKNOWN INDICATION
     Route: 042
  2. DORMICUM (INJ) [Suspect]
     Indication: DRUG USE FOR UNKNOWN INDICATION
     Dosage: ROUTE REPORTED AS INTRAJUGULAR
     Route: 050

REACTIONS (2)
  - BRAIN OEDEMA [None]
  - DELAYED RECOVERY FROM ANAESTHESIA [None]
